FAERS Safety Report 8132560-1 (Version None)
Quarter: 2012Q1

REPORT INFORMATION
  Report Type: 
  Country: None (occurrence: None)
  Receive Date: 20120213
  Receipt Date: 20120206
  Transmission Date: 20120608
  Serious: Yes (Other)
  Sender: FDA-Public Use
  Company Number: US-PFIZER INC-2012034704

PATIENT
  Sex: Female
  Weight: 68 kg

DRUGS (3)
  1. LO/OVRAL-28 [Suspect]
     Indication: HORMONE LEVEL ABNORMAL
  2. LO/OVRAL-28 [Suspect]
     Indication: OFF LABEL USE
     Dosage: 1 DF, 1X/DAY
     Dates: start: 20120130
  3. PROZAC [Concomitant]

REACTIONS (2)
  - MOOD SWINGS [None]
  - VAGINAL HAEMORRHAGE [None]
